FAERS Safety Report 14077274 (Version 1)
Quarter: 2017Q4

REPORT INFORMATION
  Report Type: Spontaneous
  Country: US (occurrence: US)
  Receive Date: 20171012
  Receipt Date: 20171012
  Transmission Date: 20180321
  Serious: No
  Sender: FDA-Public Use
  Company Number: US-LUPIN PHARMACEUTICALS INC.-2017-04815

PATIENT
  Age: 60 Year
  Sex: Female
  Weight: 63.95 kg

DRUGS (1)
  1. CEPHALEXIN CAPSULES USP, 500 MG [Suspect]
     Active Substance: CEPHALEXIN
     Indication: GINGIVAL ABSCESS
     Dosage: 500 MG, QID
     Route: 048
     Dates: start: 20170809, end: 20170809

REACTIONS (5)
  - Asthenia [Not Recovered/Not Resolved]
  - Vomiting [Not Recovered/Not Resolved]
  - Arthralgia [Not Recovered/Not Resolved]
  - Dizziness [Not Recovered/Not Resolved]
  - Nasal discharge discolouration [Recovered/Resolved]

NARRATIVE: CASE EVENT DATE: 20170809
